FAERS Safety Report 7902147-1 (Version None)
Quarter: 2011Q4

REPORT INFORMATION
  Report Type: 
  Country: None (occurrence: None)
  Receive Date: 20111108
  Receipt Date: 20111103
  Transmission Date: 20120403
  Serious: Yes (Other)
  Sender: FDA-Public Use
  Company Number: US-BAYER-2011-106672

PATIENT
  Sex: Female

DRUGS (2)
  1. BEYAZ [Suspect]
     Indication: DYSMENORRHOEA
  2. BEYAZ [Suspect]
     Indication: CONTRACEPTION
     Dosage: 1 DF (3MG/0.02MG/0.451MG/0.45), QD
     Route: 048
     Dates: start: 20111017, end: 20111026

REACTIONS (2)
  - BREAST PAIN [None]
  - AMNESIA [None]
